FAERS Safety Report 24941437 (Version 1)
Quarter: 2025Q1

REPORT INFORMATION
  Report Type: Spontaneous
  Country: US (occurrence: US)
  Receive Date: 20250207
  Receipt Date: 20250207
  Transmission Date: 20250408
  Serious: Yes (Other)
  Sender: SANOFI AVENTIS
  Company Number: US-SA-2025SA036112

PATIENT
  Age: 69 Year
  Sex: Female

DRUGS (7)
  1. REZUROCK [Suspect]
     Active Substance: BELUMOSUDIL
     Indication: Plasma cell myeloma
     Dosage: 200 MG, QD
     Route: 048
  2. ACYCLOVIR [Concomitant]
     Active Substance: ACYCLOVIR
  3. GLIMEPIRIDE [Concomitant]
     Active Substance: GLIMEPIRIDE
  4. HUMULIN R [Concomitant]
     Active Substance: INSULIN HUMAN
  5. OMEPRAZOLE [Concomitant]
     Active Substance: OMEPRAZOLE
  6. MYCOPHENOLATE MOFETIL [Concomitant]
     Active Substance: MYCOPHENOLATE MOFETIL
  7. PREDNISONE [Concomitant]
     Active Substance: PREDNISONE

REACTIONS (2)
  - Cataract [Unknown]
  - Product use in unapproved indication [Unknown]
